FAERS Safety Report 5474532-1 (Version None)
Quarter: 2007Q4

REPORT INFORMATION
  Report Type: 
  Country: None (occurrence: None)
  Receive Date: 20071002
  Receipt Date: 20070925
  Transmission Date: 20080405
  Serious: No
  Sender: FDA-Public Use
  Company Number: US-ELI_LILLY_AND_COMPANY-US200709005883

PATIENT
  Age: 22 Year
  Sex: Male

DRUGS (3)
  1. ZYPREXA [Suspect]
  2. SEROQUEL [Concomitant]
  3. LAMICTAL [Concomitant]

REACTIONS (2)
  - HAEMOPTYSIS [None]
  - PNEUMONIA [None]
